FAERS Safety Report 13355069 (Version 1)
Quarter: 2017Q1

REPORT INFORMATION
  Report Type: Not Available
  Country: FR (occurrence: FR)
  Receive Date: 20170321
  Receipt Date: 20170321
  Transmission Date: 20170429
  Serious: Yes (Other)
  Sender: FDA-Public Use
  Company Number: FR-AKORN-52435

PATIENT
  Age: 80 Year
  Sex: Female

DRUGS (1)
  1. COSOPT [Suspect]
     Active Substance: DORZOLAMIDE HYDROCHLORIDE\TIMOLOL MALEATE

REACTIONS (3)
  - Dyspnoea [Recovered/Resolved]
  - Arthralgia [Recovered/Resolved]
  - Oedema peripheral [Recovered/Resolved]

NARRATIVE: CASE EVENT DATE: 20161123
